FAERS Safety Report 10920933 (Version 1)
Quarter: 2015Q1

REPORT INFORMATION
  Report Type: Spontaneous
  Country: US (occurrence: US)
  Receive Date: 20150317
  Receipt Date: 20150317
  Transmission Date: 20150721
  Serious: No
  Sender: FDA-Public Use
  Company Number: US-TEVA-539085USA

PATIENT

DRUGS (1)
  1. DULOXETINE [Suspect]
     Active Substance: DULOXETINE

REACTIONS (5)
  - Headache [Recovered/Resolved]
  - Hypersomnia [Unknown]
  - Asthenia [Recovered/Resolved]
  - Depressed mood [Recovered/Resolved]
  - Product substitution issue [Unknown]
